FAERS Safety Report 23787614 (Version 1)
Quarter: 2024Q2

REPORT INFORMATION
  Report Type: Spontaneous
  Country: CA (occurrence: CA)
  Receive Date: 20240426
  Receipt Date: 20240426
  Transmission Date: 20240716
  Serious: Yes (Death, Hospitalization, Other)
  Sender: FDA-Public Use
  Company Number: CA-009507513-2404CAN010207

PATIENT
  Age: 91 Year
  Sex: Female
  Weight: 41 kg

DRUGS (19)
  1. INVANZ [Suspect]
     Active Substance: ERTAPENEM SODIUM
     Indication: Urinary tract infection
     Dosage: 500 MILLIGRAM, 1 EVERY 1 DAYS
     Route: 042
  2. CEPHALEXIN [Suspect]
     Active Substance: CEPHALEXIN
     Indication: Prophylaxis
     Dosage: 250 MILLIGRAM, 1 EVERY 1 DAYS
     Route: 048
  3. PIPERACILLIN AND TAZOBACTAM [Suspect]
     Active Substance: PIPERACILLIN SODIUM\TAZOBACTAM SODIUM
     Dosage: 3 GRAM, 1 EVERY 6 HOURS
     Route: 042
  4. ACETAMINOPHEN [Concomitant]
     Active Substance: ACETAMINOPHEN
     Route: 065
  5. ACYCLOVIR [Concomitant]
     Active Substance: ACYCLOVIR
     Route: 065
  6. CENTRUM FORTE [Concomitant]
     Route: 048
  7. COLLYRIUM FOR FRESH EYES [Concomitant]
     Route: 065
  8. DEXAMETHASONE [Concomitant]
     Active Substance: DEXAMETHASONE
     Route: 065
  9. ENOXAPARIN [Concomitant]
     Active Substance: ENOXAPARIN
     Route: 065
  10. LACTULOSE [Concomitant]
     Active Substance: LACTULOSE
     Route: 065
  11. LEVOTHYROXINE [Concomitant]
     Active Substance: LEVOTHYROXINE\LEVOTHYROXINE SODIUM
     Route: 065
  12. NYSTATIN [Concomitant]
     Active Substance: NYSTATIN
     Route: 065
  13. SERTRALINE [Concomitant]
     Active Substance: SERTRALINE HYDROCHLORIDE
     Route: 048
  14. SODIUM BICARBONATE [Concomitant]
     Active Substance: SODIUM BICARBONATE
     Route: 065
  15. SODIUM PHOSPHATE [Concomitant]
     Active Substance: SODIUM PHOSPHATE
     Route: 065
  16. THIAMINE [Concomitant]
     Active Substance: THIAMINE
     Route: 048
  17. VALACYCLOVIR [Concomitant]
     Active Substance: VALACYCLOVIR HYDROCHLORIDE
     Route: 065
  18. VEKLURY [Concomitant]
     Active Substance: REMDESIVIR
     Route: 065
  19. VITAMIN D3 [Concomitant]
     Active Substance: CHOLECALCIFEROL
     Route: 048

REACTIONS (7)
  - Clostridium difficile infection [Fatal]
  - Depressed level of consciousness [Fatal]
  - Dyspnoea [Fatal]
  - Failure to thrive [Fatal]
  - Hypernatraemia [Fatal]
  - Unresponsive to stimuli [Fatal]
  - Urinary tract infection [Fatal]
